FAERS Safety Report 8429628-9 (Version None)
Quarter: 2012Q2

REPORT INFORMATION
  Report Type: 
  Country: None (occurrence: None)
  Receive Date: 20120612
  Receipt Date: 20120530
  Transmission Date: 20120825
  Serious: Yes (Death, Other)
  Sender: FDA-Public Use
  Company Number: US-BAXTER-2010BH018167

PATIENT
  Sex: Female
  Weight: 53.7 kg

DRUGS (3)
  1. INSULIN [Suspect]
  2. EXTRANEAL [Suspect]
     Route: 033
     Dates: start: 20030101, end: 20100613
  3. DIANEAL [Suspect]
     Route: 033
     Dates: end: 20100613

REACTIONS (3)
  - DEVICE INTERACTION [None]
  - DEATH [None]
  - HYPOGLYCAEMIA [None]
